FAERS Safety Report 23168574 (Version 1)
Quarter: 2023Q4

REPORT INFORMATION
  Report Type: Spontaneous
  Country: BE (occurrence: BE)
  Receive Date: 20231110
  Receipt Date: 20231110
  Transmission Date: 20240110
  Serious: Yes (Hospitalization)
  Sender: FDA-Public Use
  Company Number: BE-JNJFOC-20230739319

PATIENT
  Age: 5 Year
  Sex: Male
  Weight: 18.25 kg

DRUGS (2)
  1. ZAVESCA [Suspect]
     Active Substance: MIGLUSTAT
     Indication: Galactosialidosis
     Dosage: 100-200MG
     Route: 048
     Dates: start: 20230503
  2. ALIZAPRIDE HYDROCHLORIDE [Concomitant]
     Active Substance: ALIZAPRIDE HYDROCHLORIDE
     Indication: Vomiting
     Route: 042
     Dates: start: 20231006, end: 20231008

REACTIONS (3)
  - Pneumonia [Recovered/Resolved]
  - Gastroenteritis viral [Recovered/Resolved]
  - Off label use [Unknown]

NARRATIVE: CASE EVENT DATE: 20231006
